FAERS Safety Report 16497411 (Version 2)
Quarter: 2019Q3

REPORT INFORMATION
  Report Type: Spontaneous
  Country: CO (occurrence: CO)
  Receive Date: 20190628
  Receipt Date: 20190718
  Transmission Date: 20191004
  Serious: Yes (Other)
  Sender: FDA-Public Use
  Company Number: CO-BIOMARINAP-CO-2019-124452

PATIENT
  Sex: Female

DRUGS (1)
  1. VIMIZIM [Suspect]
     Active Substance: ELOSULFASE ALFA
     Indication: MUCOPOLYSACCHARIDOSIS IV
     Dosage: UNK
     Route: 065
     Dates: start: 20160601

REACTIONS (4)
  - Myalgia [Unknown]
  - Foramen magnum stenosis [Unknown]
  - Product dose omission [Unknown]
  - Abdominal pain [Unknown]
